FAERS Safety Report 24991083 (Version 2)
Quarter: 2025Q1

REPORT INFORMATION
  Report Type: Spontaneous
  Country: US (occurrence: US)
  Receive Date: 20250220
  Receipt Date: 20250321
  Transmission Date: 20250408
  Serious: No
  Sender: VERTEX
  Company Number: US-VERTEX PHARMACEUTICALS-2025-002369

PATIENT
  Sex: Female

DRUGS (1)
  1. ALYFTREK [Suspect]
     Active Substance: DEUTIVACAFTOR\TEZACAFTOR\VANZACAFTOR
     Indication: Cystic fibrosis
     Dosage: ONCE A DAY (AT NIGHT)
     Route: 048

REACTIONS (3)
  - Breath sounds abnormal [Recovered/Resolved]
  - Nasopharyngitis [Unknown]
  - Muscle spasms [Unknown]
